FAERS Safety Report 6722822-4 (Version None)
Quarter: 2010Q2

REPORT INFORMATION
  Report Type: 
  Country: None (occurrence: None)
  Receive Date: 20100512
  Receipt Date: 20100512
  Transmission Date: 20101027
  Serious: Yes (Hospitalization)
  Sender: FDA-Public Use
  Company Number: None

PATIENT
  Age: 67 Year
  Sex: Male
  Weight: 80 kg

DRUGS (2)
  1. CEFUROXIME [Suspect]
     Indication: PNEUMONIA
     Dosage: 500 MG BID PO
     Route: 048
     Dates: start: 20100315, end: 20100322
  2. CEFTRIAXONE [Suspect]
     Indication: PNEUMONIA
     Dosage: 2 GM EVERY DAY IV
     Route: 042
     Dates: start: 20100310, end: 20100315

REACTIONS (1)
  - CLOSTRIDIUM DIFFICILE COLITIS [None]
